FAERS Safety Report 24846218 (Version 3)
Quarter: 2025Q1

REPORT INFORMATION
  Report Type: Spontaneous
  Country: US (occurrence: US)
  Receive Date: 20250115
  Receipt Date: 20250131
  Transmission Date: 20250409
  Serious: No
  Sender: PFIZER
  Company Number: US-PFIZER INC-202400327928

PATIENT
  Age: 94 Year
  Sex: Female
  Weight: 57.61 kg

DRUGS (1)
  1. IBRANCE [Suspect]
     Active Substance: PALBOCICLIB
     Indication: Metastatic neoplasm

REACTIONS (2)
  - Memory impairment [Unknown]
  - Accidental overdose [Unknown]
